FAERS Safety Report 4938639-7 (Version None)
Quarter: 2006Q1

REPORT INFORMATION
  Report Type: 
  Country: None (occurrence: None)
  Receive Date: 20060306
  Receipt Date: 20060222
  Transmission Date: 20060701
  Serious: No
  Sender: FDA-Public Use
  Company Number: C06-022

PATIENT
  Sex: Female
  Weight: 83.9154 kg

DRUGS (1)
  1. PHENTERMINE TABLETS, USP 37.5 MG [Suspect]
     Indication: OBESITY
     Dosage: 1 TABLET IN THE MORNING
     Dates: start: 20060214, end: 20060219

REACTIONS (2)
  - DRUG INEFFECTIVE [None]
  - PHARMACEUTICAL PRODUCT COMPLAINT [None]
